FAERS Safety Report 6671141-3 (Version None)
Quarter: 2010Q2

REPORT INFORMATION
  Report Type: 
  Country: None (occurrence: None)
  Receive Date: 20100407
  Receipt Date: 20100329
  Transmission Date: 20101027
  Serious: Yes (Other)
  Sender: FDA-Public Use
  Company Number: AU-ASTRAZENECA-2010SE13139

PATIENT
  Age: 704 Month
  Sex: Male
  Weight: 92 kg

DRUGS (4)
  1. CRESTOR [Suspect]
     Indication: BLOOD CHOLESTEROL INCREASED
     Route: 048
     Dates: start: 20090801
  2. FLOMAXTRA [Concomitant]
     Indication: BENIGN PROSTATIC HYPERPLASIA
     Route: 048
     Dates: start: 20091001
  3. M.CARDI [Concomitant]
     Indication: BLOOD PRESSURE MANAGEMENT
     Route: 048
     Dates: start: 20090901
  4. CARTIA XT [Concomitant]
     Indication: BLOOD PRESSURE MANAGEMENT
     Route: 048
     Dates: start: 20090201

REACTIONS (1)
  - GOUT [None]
